FAERS Safety Report 8540427-X (Version None)
Quarter: 2012Q3

REPORT INFORMATION
  Report Type: 
  Country: None (occurrence: None)
  Receive Date: 20120726
  Receipt Date: 20120127
  Transmission Date: 20120928
  Serious: No
  Sender: FDA-Public Use
  Company Number: US-ASTRAZENECA-2011SE36308

PATIENT
  Age: 51 Year
  Sex: Female

DRUGS (3)
  1. ANXIETY MEDICATION [Suspect]
     Indication: ANXIETY
     Route: 065
  2. SEROQUEL XR [Suspect]
     Route: 048
  3. SEROQUEL XR [Suspect]
     Indication: BIPOLAR DISORDER
     Route: 048

REACTIONS (11)
  - PHARYNGITIS STREPTOCOCCAL [None]
  - MENTAL IMPAIRMENT [None]
  - NERVOUSNESS [None]
  - MULTIPLE ALLERGIES [None]
  - WITHDRAWAL SYNDROME [None]
  - DRUG DOSE OMISSION [None]
  - CONFUSIONAL STATE [None]
  - FEELING OF DESPAIR [None]
  - MALAISE [None]
  - AGGRESSION [None]
  - THERAPEUTIC RESPONSE UNEXPECTED [None]
